FAERS Safety Report 8965711 (Version 3)
Quarter: 2013Q1

REPORT INFORMATION
  Report Type: Spontaneous
  Country: JP (occurrence: None)
  Receive Date: 20121206
  Receipt Date: 20130118
  Transmission Date: 20140127
  Serious: Yes (Hospitalization)
  Sender: FDA-Public Use
  Company Number: JP-1195509

PATIENT
  Age: 80 Year
  Sex: Male
  Weight: 65 kg

DRUGS (6)
  1. NEVANAC [Suspect]
     Indication: POSTOPERATIVE CARE
     Route: 047
     Dates: start: 20121022, end: 20121121
  2. TRAVATAN [Suspect]
     Indication: GLAUCOMA
     Dosage: 1 DF QID.
     Route: 047
     Dates: start: 20121029
  3. CRAVIT [Concomitant]
  4. RINDERON-A [Concomitant]
  5. BETA BLOCKING AGENTS [Concomitant]
  6. TIMOPTOL [Concomitant]

REACTIONS (7)
  - Muscle spasms [None]
  - Headache [None]
  - Dysgeusia [None]
  - Dyskinesia [None]
  - Neck pain [None]
  - Parosmia [None]
  - Muscle spasms [None]
